FAERS Safety Report 19578125 (Version 1)
Quarter: 2021Q3

REPORT INFORMATION
  Report Type: Spontaneous
  Country: US (occurrence: US)
  Receive Date: 20210719
  Receipt Date: 20210719
  Transmission Date: 20211014
  Serious: No
  Sender: FDA-Public Use
  Company Number: US-RICONPHARMA, LLC-2020RIC000005

PATIENT

DRUGS (1)
  1. BETAMETHASONE VALERATE. [Suspect]
     Active Substance: BETAMETHASONE VALERATE
     Indication: SKIN DISORDER
     Dosage: UNK, QD
     Route: 061
     Dates: start: 20201008

REACTIONS (1)
  - Skin reaction [Recovering/Resolving]
